FAERS Safety Report 9066819 (Version 2)
Quarter: 2013Q2

REPORT INFORMATION
  Report Type: Spontaneous
  Country: GB (occurrence: GB)
  Receive Date: 20130214
  Receipt Date: 20130411
  Transmission Date: 20140414
  Serious: Yes (Other)
  Sender: FDA-Public Use
  Company Number: GB-GLAXOSMITHKLINE-B0865956A

PATIENT
  Sex: Male

DRUGS (6)
  1. TROBALT [Suspect]
     Indication: PRODUCT USED FOR UNKNOWN INDICATION
     Route: 065
     Dates: start: 201112
  2. PHENYTOIN [Concomitant]
     Dosage: 200MG TWICE PER DAY
  3. SODIUM VALPROATE [Concomitant]
     Dosage: 500MG TWICE PER DAY
  4. LAMOTRIGINE [Concomitant]
     Dosage: 275MG PER DAY
  5. LEVETIRACETAM [Concomitant]
     Dosage: 1125MG TWICE PER DAY
  6. CLOBAZAM [Concomitant]

REACTIONS (6)
  - Drop attacks [Recovered/Resolved]
  - Convulsion [Recovered/Resolved]
  - Injury [Recovered/Resolved]
  - Joint swelling [Recovered/Resolved]
  - Elevated mood [Recovered/Resolved]
  - Aggression [Recovered/Resolved]
